FAERS Safety Report 8120188-9 (Version None)
Quarter: 2012Q1

REPORT INFORMATION
  Report Type: 
  Country: None (occurrence: None)
  Receive Date: 20120207
  Receipt Date: 20120130
  Transmission Date: 20120608
  Serious: Yes (Hospitalization, Disabling)
  Sender: FDA-Public Use
  Company Number: US-BAYER-2010-008929

PATIENT
  Age: 16 Year
  Sex: Female
  Weight: 68.027 kg

DRUGS (7)
  1. YASMIN [Suspect]
     Indication: ACNE
     Dosage: UNK
     Route: 048
     Dates: start: 20070101, end: 20080701
  2. DROSPIRENONE AND ETHINYL ESTRADIOL [Suspect]
     Indication: ACNE
     Dosage: UNK
     Route: 048
     Dates: start: 20080101
  3. ALLEGRA-D 12 HOUR [Concomitant]
     Indication: HYPERSENSITIVITY
     Dosage: UNK
     Dates: start: 20060101, end: 20090101
  4. LAXATIVE [Concomitant]
     Dosage: UNK
     Dates: start: 20080821
  5. ASCORBIC ACID [Concomitant]
     Dosage: DAILY
  6. YAZ [Suspect]
     Route: 048
  7. STEROIDS NOS [Concomitant]
     Dosage: UNK
     Dates: start: 20080814

REACTIONS (3)
  - DEEP VEIN THROMBOSIS [None]
  - PULMONARY EMBOLISM [None]
  - PAIN [None]
